FAERS Safety Report 21330471 (Version 6)
Quarter: 2024Q1

REPORT INFORMATION
  Report Type: Spontaneous
  Country: US (occurrence: US)
  Receive Date: 20220913
  Receipt Date: 20240201
  Transmission Date: 20240410
  Serious: Yes (Other)
  Sender: FDA-Public Use
  Company Number: US-PFIZER INC-PV202200062115

PATIENT
  Age: 20 Year
  Sex: Female

DRUGS (3)
  1. XELJANZ [Suspect]
     Active Substance: TOFACITINIB CITRATE
     Indication: Proctitis ulcerative
     Dosage: UNK
     Route: 048
     Dates: start: 2017
  2. XELJANZ [Suspect]
     Active Substance: TOFACITINIB CITRATE
     Dosage: 5 MG, 2X/DAY
     Route: 048
  3. XELJANZ [Suspect]
     Active Substance: TOFACITINIB CITRATE
     Dosage: HALF DOSE, ALTERNATE DAY

REACTIONS (8)
  - Autism spectrum disorder [Unknown]
  - Suicidal ideation [Unknown]
  - Condition aggravated [Unknown]
  - Off label use [Unknown]
  - Attention deficit hyperactivity disorder [Unknown]
  - Fear of injection [Unknown]
  - Depressed mood [Unknown]
  - Intentional product misuse [Unknown]

NARRATIVE: CASE EVENT DATE: 20170101
